FAERS Safety Report 6894538-5 (Version None)
Quarter: 2010Q3

REPORT INFORMATION
  Report Type: 
  Country: None (occurrence: None)
  Receive Date: 20100802
  Receipt Date: 20090505
  Transmission Date: 20110219
  Serious: Yes (Other)
  Sender: FDA-Public Use
  Company Number: US-PFIZER INC-2008150812

PATIENT

DRUGS (2)
  1. NEURONTIN [Suspect]
     Dosage: UNK
     Dates: start: 20040101
  2. ZITHROMAX [Concomitant]

REACTIONS (5)
  - ANKLE FRACTURE [None]
  - COGNITIVE DISORDER [None]
  - MEMORY IMPAIRMENT [None]
  - THYROID DISORDER [None]
  - WEIGHT INCREASED [None]
